FAERS Safety Report 15578909 (Version 2)
Quarter: 2018Q4

REPORT INFORMATION
  Report Type: Spontaneous
  Country: IT (occurrence: IT)
  Receive Date: 20181102
  Receipt Date: 20181122
  Transmission Date: 20190205
  Serious: Yes (Life-Threatening)
  Sender: FDA-Public Use
  Company Number: IT-ACS-001261

PATIENT
  Age: 73 Year
  Sex: Female

DRUGS (1)
  1. CEFTRIAXONE. [Suspect]
     Active Substance: CEFTRIAXONE
     Indication: CYSTOSCOPY
     Route: 042
     Dates: start: 2016

REACTIONS (1)
  - Kounis syndrome [Recovered/Resolved]

NARRATIVE: CASE EVENT DATE: 2016
